FAERS Safety Report 23733513 (Version 1)
Quarter: 2024Q2

REPORT INFORMATION
  Report Type: Spontaneous
  Country: US (occurrence: US)
  Receive Date: 20240411
  Receipt Date: 20240411
  Transmission Date: 20240716
  Serious: Yes (Hospitalization)
  Sender: FDA-Public Use
  Company Number: US-Covis Pharma GmbH-2024COV00402

PATIENT
  Age: 83 Year
  Sex: Female

DRUGS (1)
  1. FERAHEME [Suspect]
     Active Substance: FERUMOXYTOL NON-STOICHIOMETRIC MAGNETITE
     Indication: Iron deficiency anaemia
     Dates: start: 20230723

REACTIONS (20)
  - Thrombosis [Unknown]
  - Faeces discoloured [Unknown]
  - Feeling abnormal [Unknown]
  - Hypersomnia [Unknown]
  - Eye swelling [Recovered/Resolved]
  - Swollen tongue [Not Recovered/Not Resolved]
  - Lymphadenopathy [Unknown]
  - Ear swelling [Not Recovered/Not Resolved]
  - Dysphagia [Unknown]
  - Vision blurred [Unknown]
  - Deafness [Unknown]
  - Gait disturbance [Unknown]
  - Swelling [Unknown]
  - Dementia [Unknown]
  - Platelet disorder [Unknown]
  - Thyroid disorder [Unknown]
  - Gastrointestinal disorder [Unknown]
  - Headache [Not Recovered/Not Resolved]
  - Dizziness [Unknown]
  - Cyanosis [Recovered/Resolved]

NARRATIVE: CASE EVENT DATE: 20240125
